FAERS Safety Report 9464179 (Version 1)
Quarter: 2013Q3

REPORT INFORMATION
  Report Type: Spontaneous
  Country: US (occurrence: US)
  Receive Date: 20130819
  Receipt Date: 20130819
  Transmission Date: 20140515
  Serious: Yes (Hospitalization)
  Sender: FDA-Public Use
  Company Number: US-BAYER-2013-099088

PATIENT
  Age: 29 Year
  Sex: Female

DRUGS (5)
  1. YAZ [Suspect]
     Indication: CONTRACEPTION
  2. YASMIN [Suspect]
     Indication: CONTRACEPTION
  3. IBUPROFEN [Concomitant]
  4. DARVOCET [Concomitant]
  5. MOTRIN [Concomitant]

REACTIONS (1)
  - Deep vein thrombosis [None]
